FAERS Safety Report 10145792 (Version 1)
Quarter: 2014Q2

REPORT INFORMATION
  Report Type: Spontaneous
  Country: US (occurrence: US)
  Receive Date: 20140501
  Receipt Date: 20140501
  Transmission Date: 20141212
  Serious: No
  Sender: FDA-Public Use
  Company Number: US-ABBVIE-13P-163-1095034-00

PATIENT
  Age: 35 Year
  Sex: Female

DRUGS (1)
  1. CREON [Suspect]
     Indication: PANCREATITIS
     Dosage: 2 CAPSULES WITH MEALS
     Dates: start: 201305, end: 201305

REACTIONS (2)
  - Rash [Recovered/Resolved]
  - Rash [Recovered/Resolved]
